FAERS Safety Report 5425137-X (Version None)
Quarter: 2007Q3

REPORT INFORMATION
  Report Type: 
  Country: None (occurrence: None)
  Receive Date: 20070824
  Receipt Date: 20070813
  Transmission Date: 20080115
  Serious: Yes (Death, Other)
  Sender: FDA-Public Use
  Company Number: US-ROCHE-511506

PATIENT
  Age: 48 Year
  Sex: Male

DRUGS (4)
  1. PEGASYS [Suspect]
     Indication: HEPATITIS C
     Dosage: REPORTED THAT ^PATIENT WAS HALF WAY THROUGH THERAPY.^
     Route: 065
  2. RIBAVIRIN [Suspect]
     Indication: HEPATITIS C
     Dosage: REPORTED THAT ^PATIENT WAS HALF WAY THROUGH THERAPY.^
     Route: 065
  3. AMBIEN [Concomitant]
  4. ROZEREM [Concomitant]

REACTIONS (3)
  - DEATH [None]
  - INSOMNIA [None]
  - OVERDOSE [None]
